FAERS Safety Report 5171183-3 (Version None)
Quarter: 2006Q4

REPORT INFORMATION
  Report Type: 
  Country: None (occurrence: None)
  Receive Date: 20061213
  Receipt Date: 20051216
  Transmission Date: 20070319
  Serious: Yes (Other)
  Sender: FDA-Public Use
  Company Number: US-AMGEN-STX161683

PATIENT
  Sex: Female

DRUGS (5)
  1. ENBREL [Suspect]
     Indication: PSORIASIS
     Dates: start: 20040901, end: 20051215
  2. LIPITOR [Concomitant]
  3. PAXIL [Concomitant]
  4. PRILOSEC [Concomitant]
  5. PREDNISONE TAB [Concomitant]

REACTIONS (1)
  - TUBERCULOSIS [None]
